FAERS Safety Report 18288158 (Version 2)
Quarter: 2020Q4

REPORT INFORMATION
  Report Type: Report from Study
  Country: GB (occurrence: GB)
  Receive Date: 20200921
  Receipt Date: 20201006
  Transmission Date: 20210113
  Serious: Yes (Other)
  Sender: FDA-Public Use
  Company Number: NVSC2020GB254317

PATIENT
  Sex: Female

DRUGS (1)
  1. GILENYA [Suspect]
     Active Substance: FINGOLIMOD HYDROCHLORIDE
     Indication: MULTIPLE SCLEROSIS
     Dosage: 1 DF, QD
     Route: 065
     Dates: end: 202009

REACTIONS (6)
  - Fatigue [Unknown]
  - Weight decreased [Unknown]
  - Anaemia [Recovered/Resolved]
  - Heart rate increased [Unknown]
  - Decreased appetite [Unknown]
  - Influenza like illness [Unknown]
